FAERS Safety Report 24312627 (Version 1)
Quarter: 2024Q3

REPORT INFORMATION
  Report Type: Spontaneous
  Country: US (occurrence: None)
  Receive Date: 20240911
  Receipt Date: 20240911
  Transmission Date: 20241016
  Serious: No
  Sender: Public
  Company Number: None

PATIENT
  Age: 81 Year
  Sex: Female

DRUGS (1)
  1. NINTEDANIB [Suspect]
     Active Substance: NINTEDANIB
     Indication: Pulmonary fibrosis
     Dosage: FREQUENCY : TWICE A DAY;?
     Route: 048
     Dates: start: 20240815, end: 20240906

REACTIONS (6)
  - Nausea [None]
  - Diarrhoea [None]
  - Abdominal pain [None]
  - Vomiting [None]
  - Blood pressure systolic increased [None]
  - Refusal of treatment by patient [None]

NARRATIVE: CASE EVENT DATE: 20240830
